FAERS Safety Report 7001339-6 (Version None)
Quarter: 2010Q3

REPORT INFORMATION
  Report Type: 
  Country: None (occurrence: None)
  Receive Date: 20100920
  Receipt Date: 20100604
  Transmission Date: 20110219
  Serious: No
  Sender: FDA-Public Use
  Company Number: US-ASTRAZENECA-2010SE25915

PATIENT
  Age: 81 Year
  Sex: Male
  Weight: 83.9 kg

DRUGS (4)
  1. SEROQUEL [Suspect]
     Indication: SCHIZOPHRENIA, PARANOID TYPE
     Dosage: TOTAL DAILY DOSAGE OF 100 MG, BID
     Route: 048
     Dates: start: 20100501
  2. SEROQUEL [Suspect]
     Indication: DEMENTIA
     Dosage: TOTAL DAILY DOSAGE OF 100 MG, BID
     Route: 048
     Dates: start: 20100501
  3. SEROQUEL [Suspect]
     Dosage: TOTAL DOSE OF 100 MG, BID
     Route: 048
  4. SEROQUEL [Suspect]
     Dosage: TOTAL DOSE OF 100 MG, BID
     Route: 048

REACTIONS (4)
  - ABNORMAL BEHAVIOUR [None]
  - AGITATION [None]
  - APHAGIA [None]
  - DRUG DOSE OMISSION [None]
